FAERS Safety Report 6011275-X (Version None)
Quarter: 2008Q4

REPORT INFORMATION
  Report Type: 
  Country: None (occurrence: None)
  Receive Date: 20081218
  Receipt Date: 20081209
  Transmission Date: 20090506
  Serious: Yes (Other)
  Sender: FDA-Public Use
  Company Number: PHHY2008DE32270

PATIENT
  Sex: Male

DRUGS (3)
  1. RITALIN [Suspect]
     Route: 048
  2. MEDIKINET [Suspect]
     Route: 048
  3. RITALIN - SLOW RELEASE [Concomitant]
     Dosage: 20 MG DAILY
     Route: 048
     Dates: start: 20020101

REACTIONS (3)
  - REBOUND EFFECT [None]
  - TACHYCARDIA [None]
  - TIC [None]
